FAERS Safety Report 8836568 (Version 2)
Quarter: 2013Q1

REPORT INFORMATION
  Report Type: Spontaneous
  Country: US (occurrence: None)
  Receive Date: 20121009
  Receipt Date: 20121120
  Transmission Date: 20140127
  Serious: Yes (Other)
  Sender: FDA-Public Use
  Company Number: AUR-APL-2012-04281

PATIENT
  Age: 68 Year
  Sex: Male
  Weight: 84 kg

DRUGS (4)
  1. METOPROLOL [Suspect]
     Indication: PRODUCT USED FOR UNKNOWN INDICATION
  2. SPRYCEL [Suspect]
     Indication: CHRONIC MYELOID LEUKAEMIA
     Dates: start: 200806
  3. LIPITOR (ATORVASTATIN CALCIUM) [Suspect]
     Indication: PRODUCT USED FOR UNKNOWN INDICATION
  4. PLAVIX [Suspect]
     Indication: PRODUCT USED FOR UNKNOWN INDICATION

REACTIONS (1)
  - Pleural effusion [None]
